FAERS Safety Report 8138968 (Version 6)
Quarter: 2013Q2

REPORT INFORMATION
  Report Type: Report from Study
  Country: KR (occurrence: KR)
  Receive Date: 20110915
  Receipt Date: 20130529
  Transmission Date: 20140414
  Serious: Yes (Hospitalization)
  Sender: FDA-Public Use
  Company Number: KR-BRISTOL-MYERS SQUIBB COMPANY-16054827

PATIENT
  Age: 72 Year
  Sex: Male
  Weight: 64 kg

DRUGS (8)
  1. CISPLATIN [Suspect]
     Indication: NON-SMALL CELL LUNG CANCER
     Dosage: LAST DOSE ON 22AUG2011, 14SEP11.ALSO RECEIVED 127MG
     Route: 065
     Dates: start: 20110617
  2. GEMCITABINE HCL [Suspect]
     Indication: NON-SMALL CELL LUNG CANCER
     Dosage: LAST DOSE ON 22AUG2011,14SEP11
     Route: 065
     Dates: start: 20110617
  3. NECITUMUMAB [Suspect]
     Indication: NON-SMALL CELL LUNG CANCER
     Dosage: LAST DOSE ON 22AUG2011,14SEP11
     Route: 065
     Dates: start: 20110617
  4. MEGACE [Concomitant]
  5. PANTOLOC [Concomitant]
  6. ALMAGEL [Concomitant]
  7. CODEINE PHOSPHATE [Concomitant]
  8. TERPIN HYDRATE [Concomitant]

REACTIONS (1)
  - Haemoptysis [Recovered/Resolved]
